FAERS Safety Report 5741422-6 (Version None)
Quarter: 2008Q2

REPORT INFORMATION
  Report Type: 
  Country: None (occurrence: None)
  Receive Date: 20080514
  Receipt Date: 20080501
  Transmission Date: 20081010
  Serious: Yes (Hospitalization)
  Sender: FDA-Public Use
  Company Number: 02100-JPN-07-0520

PATIENT
  Age: 39 Year
  Sex: Female
  Weight: 72.2 kg

DRUGS (4)
  1. PLETAL [Suspect]
     Indication: MOYAMOYA DISEASE
     Dosage: 50 MG, BID ORAL
     Route: 048
     Dates: start: 20070815, end: 20070826
  2. PLETAL [Suspect]
     Indication: TRANSIENT ISCHAEMIC ATTACK
     Dosage: 50 MG, BID ORAL
     Route: 048
     Dates: start: 20070815, end: 20070826
  3. PANALIDE (PICLODIPINE) [Concomitant]
  4. ASPIRIN [Concomitant]

REACTIONS (6)
  - ABORTION THREATENED [None]
  - CAESAREAN SECTION [None]
  - DRUG EXPOSURE DURING PREGNANCY [None]
  - NORMAL NEWBORN [None]
  - PREMATURE LABOUR [None]
  - THREATENED LABOUR [None]
